FAERS Safety Report 13838154 (Version 1)
Quarter: 2017Q3

REPORT INFORMATION
  Report Type: Spontaneous
  Country: US (occurrence: US)
  Receive Date: 20170807
  Receipt Date: 20170807
  Transmission Date: 20171127
  Serious: No
  Sender: FDA-Public Use
  Company Number: US-009507513-1707USA006036

PATIENT
  Age: 26 Year
  Sex: Female
  Weight: 86.17 kg

DRUGS (1)
  1. NEXPLANON [Suspect]
     Active Substance: ETONOGESTREL
     Indication: CONTRACEPTION
     Dosage: 1 IMPLANT IN RIGHT ARM, EVERY 3 YEARS
     Route: 059
     Dates: start: 20140703

REACTIONS (3)
  - Implant site irritation [Unknown]
  - Incorrect drug administration duration [Unknown]
  - Implant site pain [Unknown]

NARRATIVE: CASE EVENT DATE: 201707
